FAERS Safety Report 11981647 (Version 1)
Quarter: 2016Q1

REPORT INFORMATION
  Report Type: Spontaneous
  Country: US (occurrence: None)
  Receive Date: 20160129
  Receipt Date: 20160129
  Transmission Date: 20160526
  Serious: Yes (Other)
  Sender: FDA-Public Use
  Company Number: None

PATIENT
  Age: 69 Year
  Sex: Male
  Weight: 83.01 kg

DRUGS (1)
  1. TESTOSTERONE. [Suspect]
     Active Substance: TESTOSTERONE
     Dosage: 4MG/24HR Q 24 HR TRANSDERMAL
     Route: 062

REACTIONS (2)
  - Application site ulcer [None]
  - Application site vesicles [None]

NARRATIVE: CASE EVENT DATE: 20160128
